FAERS Safety Report 18062876 (Version 1)
Quarter: 2020Q3

REPORT INFORMATION
  Report Type: Spontaneous
  Country: US (occurrence: US)
  Receive Date: 20200723
  Receipt Date: 20200723
  Transmission Date: 20201103
  Serious: No
  Sender: FDA-Public Use
  Company Number: US-IGSA-SR10009451

PATIENT
  Age: 20 Year
  Sex: Male
  Weight: 79 kg

DRUGS (3)
  1. GAMUNEX?C [Suspect]
     Active Substance: HUMAN IMMUNOGLOBULIN G
     Indication: PAEDIATRIC AUTOIMMUNE NEUROPSYCHIATRIC DISORDERS ASSOCIATED WITH STREPTOCOCCAL INFECTION
     Dosage: 65 G, Q.3M.
     Route: 042
     Dates: start: 201907, end: 201907
  2. GAMUNEX?C [Suspect]
     Active Substance: HUMAN IMMUNOGLOBULIN G
     Dosage: 65 G, Q.3M.
     Route: 042
     Dates: start: 201711
  3. GAMUNEX?C [Suspect]
     Active Substance: HUMAN IMMUNOGLOBULIN G
     Indication: HYPOGAMMAGLOBULINAEMIA
     Dosage: 65 G, Q.3M.
     Route: 042
     Dates: start: 201910, end: 201910

REACTIONS (1)
  - Visual acuity reduced transiently [Recovered/Resolved]

NARRATIVE: CASE EVENT DATE: 201907
